FAERS Safety Report 9315168 (Version 2)
Quarter: 2013Q2

REPORT INFORMATION
  Report Type: Spontaneous
  Country: CN (occurrence: CN)
  Receive Date: 20130529
  Receipt Date: 20130611
  Transmission Date: 20140414
  Serious: Yes (Other)
  Sender: FDA-Public Use
  Company Number: CN-NAPPMUNDI-GBR-2013-0012859

PATIENT
  Age: 70 Year
  Sex: Female
  Weight: 60 kg

DRUGS (3)
  1. MORPHINE SULFATE CR TABLET [Suspect]
     Indication: ANALGESIC THERAPY
     Dosage: 15 MG, DAILY
     Route: 048
  2. MORPHINE SULFATE CR TABLET [Suspect]
     Indication: BLADDER CANCER
     Dosage: 30 MG, BID
     Route: 048
     Dates: start: 20091014, end: 20091015
  3. MORPHINE SULFATE CR TABLET [Suspect]
     Indication: METASTASIS

REACTIONS (4)
  - Delirium [Recovering/Resolving]
  - Speech disorder [Recovering/Resolving]
  - Insomnia [Recovering/Resolving]
  - Restlessness [Recovering/Resolving]
